FAERS Safety Report 4570607-X (Version None)
Quarter: 2005Q1

REPORT INFORMATION
  Report Type: 
  Country: None (occurrence: None)
  Receive Date: 20050204
  Receipt Date: 20050125
  Transmission Date: 20050727
  Serious: Yes (Other)
  Sender: FDA-Public Use
  Company Number: GB-GLAXOSMITHKLINE-B0365862A

PATIENT
  Age: 38 Year
  Sex: Male
  Weight: 68.18 kg

DRUGS (8)
  1. PAROXETINE HYDROCHLORIDE [Suspect]
     Indication: DEPRESSION
     Route: 048
     Dates: start: 20000121, end: 20041018
  2. DOMPERIDONE [Concomitant]
     Route: 065
     Dates: start: 20041215
  3. DOSULEPIN [Concomitant]
     Route: 065
     Dates: start: 20041129
  4. RISPERIDONE [Concomitant]
     Route: 065
     Dates: start: 20041129
  5. DOVOBET [Concomitant]
     Route: 065
     Dates: start: 20050118
  6. BETAMETHASONE VALERATE [Concomitant]
     Route: 065
     Dates: start: 20050118
  7. CAPASAL [Concomitant]
     Route: 065
     Dates: start: 20050118
  8. OMEPRAZOLE [Concomitant]
     Route: 065
     Dates: end: 20041214

REACTIONS (5)
  - AGGRESSION [None]
  - AGITATION [None]
  - ANXIETY [None]
  - DRUG WITHDRAWAL CONVULSIONS [None]
  - DRUG WITHDRAWAL SYNDROME [None]
